APPROVED DRUG PRODUCT: FIDAXOMICIN
Active Ingredient: FIDAXOMICIN
Strength: 200MG
Dosage Form/Route: TABLET;ORAL
Application: A220374 | Product #001 | TE Code: AB
Applicant: TORRENT PHARMACEUTICALS LTD
Approved: Jan 27, 2026 | RLD: No | RS: No | Type: RX